FAERS Safety Report 6307127-8 (Version None)
Quarter: 2009Q3

REPORT INFORMATION
  Report Type: 
  Country: None (occurrence: None)
  Receive Date: 20090812
  Receipt Date: 20090803
  Transmission Date: 20100115
  Serious: Yes (Hospitalization, Disabling)
  Sender: FDA-Public Use
  Company Number: US-SANOFI-SYNTHELABO-F01200900540

PATIENT
  Sex: Female

DRUGS (13)
  1. LISINOPRIL [Concomitant]
  2. AVANDIA [Concomitant]
  3. CADUET [Concomitant]
     Dosage: UNK
  4. LEVAQUIN [Concomitant]
  5. METFORMIN [Concomitant]
  6. FLUOROURACIL [Suspect]
  7. GABAPENTIN [Concomitant]
  8. LEUCOVORIN CALCIUM [Suspect]
     Dosage: UNK
     Route: 065
  9. IRINOTECAN HCL [Suspect]
  10. BLINDED PLACEBO [Suspect]
     Dosage: 150 MG
     Route: 048
     Dates: start: 20080925, end: 20090423
  11. BLINDED GDC-0449 [Suspect]
     Dosage: 150 MG
     Route: 048
     Dates: start: 20080925, end: 20090423
  12. BEVACIZUMAB [Suspect]
     Dates: start: 20090414, end: 20090414
  13. OXALIPLATIN [Suspect]
     Indication: COLORECTAL CANCER METASTATIC

REACTIONS (2)
  - DEHYDRATION [None]
  - HYPEROSMOLAR STATE [None]
